FAERS Safety Report 5952112-9 (Version None)
Quarter: 2008Q4

REPORT INFORMATION
  Report Type: 
  Country: None (occurrence: None)
  Receive Date: 20081113
  Receipt Date: 20080428
  Transmission Date: 20090506
  Serious: No
  Sender: FDA-Public Use
  Company Number: A0725071A

PATIENT
  Age: 60 Year
  Sex: Male

DRUGS (5)
  1. CARVEDILOL [Suspect]
     Indication: HYPERTENSION
     Dosage: 12.5MGK TWICE PER DAY
     Route: 048
     Dates: start: 20080101
  2. LORAZEPAM [Concomitant]
  3. COUMADIN [Concomitant]
  4. LIBRAX [Concomitant]
  5. PRILOSEC [Concomitant]

REACTIONS (4)
  - DIZZINESS [None]
  - HEART RATE DECREASED [None]
  - HYPOTENSION [None]
  - MYALGIA [None]
